FAERS Safety Report 23548055 (Version 2)
Quarter: 2024Q1

REPORT INFORMATION
  Report Type: Spontaneous
  Country: US (occurrence: US)
  Receive Date: 20240221
  Receipt Date: 20240301
  Transmission Date: 20240410
  Serious: No
  Sender: FDA-Public Use
  Company Number: US-TRAVERE-2024TVT00150

PATIENT
  Age: 65 Year
  Sex: Female

DRUGS (2)
  1. FILSPARI [Suspect]
     Active Substance: SPARSENTAN
     Indication: IgA nephropathy
     Route: 048
     Dates: start: 20240209
  2. LOSARTAN [Concomitant]
     Active Substance: LOSARTAN

REACTIONS (2)
  - Contraindicated product administered [Unknown]
  - Somnolence [Unknown]

NARRATIVE: CASE EVENT DATE: 20240209
